FAERS Safety Report 10086976 (Version 26)
Quarter: 2016Q2

REPORT INFORMATION
  Report Type: Report from Study
  Country: CA (occurrence: CA)
  Receive Date: 20140418
  Receipt Date: 20160509
  Transmission Date: 20160815
  Serious: Yes (Hospitalization, Other)
  Sender: FDA-Public Use
  Company Number: PHHY2014CA007860

PATIENT
  Age: 65 Year
  Sex: Male

DRUGS (9)
  1. SANDOSTATIN LAR DEPOT [Suspect]
     Active Substance: OCTREOTIDE ACETATE
     Indication: DIARRHOEA
     Dosage: 20 MG, QMO
     Route: 030
     Dates: start: 20131223
  2. SANDOSTATIN [Suspect]
     Active Substance: OCTREOTIDE ACETATE
     Indication: DIARRHOEA
     Dosage: 200 UG, TID
     Route: 058
     Dates: start: 20130220, end: 2013
  3. AMIODARONE [Concomitant]
     Active Substance: AMIODARONE
     Indication: PRODUCT USED FOR UNKNOWN INDICATION
     Dosage: 100 MG, UNK
     Route: 065
  4. SANDOSTATIN LAR DEPOT [Suspect]
     Active Substance: OCTREOTIDE ACETATE
     Dosage: 10 MG, QMO
     Route: 030
  5. SANDOSTATIN [Suspect]
     Active Substance: OCTREOTIDE ACETATE
     Dosage: 100 UG, TID
     Route: 058
     Dates: start: 2013, end: 201401
  6. LASIX [Concomitant]
     Active Substance: FUROSEMIDE
     Dosage: 40 MG, UNK
     Route: 065
  7. LASIX [Concomitant]
     Active Substance: FUROSEMIDE
     Dosage: 60 MG, PER DAY
     Route: 065
  8. LASIX [Concomitant]
     Active Substance: FUROSEMIDE
     Indication: PRODUCT USED FOR UNKNOWN INDICATION
     Dosage: 20 MG, UNK
     Route: 065
  9. AMIODARONE [Concomitant]
     Active Substance: AMIODARONE
     Dosage: 200 MG, UNK
     Route: 065

REACTIONS (40)
  - Gastrointestinal disorder [Unknown]
  - Haemoptysis [Unknown]
  - Peripheral swelling [Unknown]
  - Epistaxis [Unknown]
  - Blood disorder [Unknown]
  - Heart rate decreased [Unknown]
  - Blood glucose fluctuation [Unknown]
  - Blood glucose decreased [Unknown]
  - Heart rate increased [Unknown]
  - Pulmonary oedema [Unknown]
  - Blood urine present [Unknown]
  - Diabetes mellitus [Not Recovered/Not Resolved]
  - Sinusitis [Unknown]
  - Abdominal distension [Unknown]
  - Product use issue [Unknown]
  - Dyspnoea [Unknown]
  - Haemoglobin decreased [Recovering/Resolving]
  - Bronchitis [Unknown]
  - Gout [Unknown]
  - International normalised ratio decreased [Unknown]
  - Blood glucose increased [Unknown]
  - Constipation [Unknown]
  - Cardiac flutter [Unknown]
  - International normalised ratio increased [Unknown]
  - Back pain [Unknown]
  - Fatigue [Unknown]
  - Heart rate irregular [Unknown]
  - Blood iron decreased [Unknown]
  - Cough [Unknown]
  - Respiratory disorder [Unknown]
  - Weight increased [Unknown]
  - Abdominal pain [Unknown]
  - Hypotension [Unknown]
  - Blood pressure systolic increased [Not Recovered/Not Resolved]
  - Serum ferritin decreased [Unknown]
  - Neck pain [Unknown]
  - Dyspnoea exertional [Unknown]
  - Weight decreased [Unknown]
  - Body temperature decreased [Unknown]
  - Dizziness [Unknown]

NARRATIVE: CASE EVENT DATE: 20140121
